FAERS Safety Report 4745303-6 (Version None)
Quarter: 2005Q3

REPORT INFORMATION
  Report Type: 
  Country: None (occurrence: None)
  Receive Date: 20050812
  Receipt Date: 20050803
  Transmission Date: 20060218
  Serious: Yes (Hospitalization)
  Sender: FDA-Public Use
  Company Number: 2005112484

PATIENT
  Sex: Male

DRUGS (1)
  1. CABERGOLINE [Suspect]
     Indication: PITUITARY TUMOUR BENIGN
     Dosage: ORAL
     Route: 048
     Dates: start: 20050201

REACTIONS (3)
  - BLOOD URINE PRESENT [None]
  - GLOMERULONEPHRITIS FOCAL [None]
  - NEPHROTIC SYNDROME [None]
